FAERS Safety Report 21843042 (Version 1)
Quarter: 2023Q1

REPORT INFORMATION
  Report Type: Spontaneous
  Country: US (occurrence: US)
  Receive Date: 20230110
  Receipt Date: 20230110
  Transmission Date: 20230418
  Serious: No
  Sender: FDA-Public Use
  Company Number: US-PERRIGO-22US010968

PATIENT
  Age: 10 Year
  Sex: Female
  Weight: 29.478 kg

DRUGS (2)
  1. PERMETHRIN [Suspect]
     Active Substance: PERMETHRIN
     Indication: Lice infestation
     Dosage: 1680 MG, SINGLE
     Route: 061
     Dates: start: 20220804, end: 20220804
  2. PERMETHRIN [Suspect]
     Active Substance: PERMETHRIN
     Dosage: 1120 MG, SINGLE
     Route: 061
     Dates: start: 20220805, end: 20220805

REACTIONS (3)
  - Drug ineffective [Unknown]
  - Incorrect dose administered [Unknown]
  - Inappropriate schedule of product administration [Unknown]

NARRATIVE: CASE EVENT DATE: 20220804
